FAERS Safety Report 26083695 (Version 2)
Quarter: 2025Q4

REPORT INFORMATION
  Report Type: Spontaneous
  Country: US (occurrence: US)
  Receive Date: 20251124
  Receipt Date: 20251127
  Transmission Date: 20260118
  Serious: Yes (Hospitalization)
  Sender: PFIZER
  Company Number: US-PFIZER INC-202500229437

PATIENT
  Age: 2 Year
  Sex: Male
  Weight: 16.6 kg

DRUGS (2)
  1. SOMATROPIN [Suspect]
     Active Substance: SOMATROPIN
     Indication: Growth hormone deficiency
     Dosage: 0.4 MG, ALTERNATE DAY(( DAILY DOSE 0.4 ALT WITH 0.6 MG/DAY 7 DAYS/WEEK)
     Route: 058
  2. SOMATROPIN [Suspect]
     Active Substance: SOMATROPIN
     Indication: Hypopituitarism
     Dosage: 0.6 MG, ALTERNATE DAY( DAILY DOSE 0.4 ALT WITH 0.6 MG/DAY 7 DAYS/WEEK)
     Route: 058

REACTIONS (1)
  - Hypoglycaemia [Recovered/Resolved]
